FAERS Safety Report 5170578-1 (Version None)
Quarter: 2006Q4

REPORT INFORMATION
  Report Type: 
  Country: None (occurrence: None)
  Receive Date: 20061205
  Receipt Date: 20061018
  Transmission Date: 20070319
  Serious: Yes (Death, Other)
  Sender: FDA-Public Use
  Company Number: 2006096263

PATIENT
  Age: 42 Year
  Sex: Female
  Weight: 70 kg

DRUGS (3)
  1. SUTENT [Suspect]
     Indication: GASTROINTESTINAL STROMAL TUMOUR
     Dosage: (50 MG, 1 IN 1 D), ORAL
     Route: 048
     Dates: start: 20060720, end: 20060805
  2. ONDASETRON (ONDANSETRON) [Concomitant]
  3. LOPERAMIDE HCL [Concomitant]

REACTIONS (6)
  - CARDIAC DISORDER [None]
  - FALL [None]
  - RASH [None]
  - SKIN EROSION [None]
  - SUDDEN DEATH [None]
  - VOMITING [None]
